FAERS Safety Report 4687980-4 (Version None)
Quarter: 2005Q2

REPORT INFORMATION
  Report Type: 
  Country: None (occurrence: None)
  Receive Date: 20050608
  Receipt Date: 20050520
  Transmission Date: 20051028
  Serious: Yes (Other)
  Sender: FDA-Public Use
  Company Number: TRP_0107_2005

PATIENT
  Age: 42 Year
  Sex: Female
  Weight: 63.9572 kg

DRUGS (3)
  1. RIBASPHERE [Suspect]
     Indication: HEPATITIS C
     Dosage: 800 MG QDAY PO
     Route: 048
     Dates: start: 20050408, end: 20050414
  2. PEG-INTRON [Suspect]
     Indication: HEPATITIS C
     Dosage: 06 MCG ONCE SC
     Route: 058
     Dates: start: 20050408, end: 20050414
  3. SYNTHROID [Concomitant]

REACTIONS (4)
  - GILBERT'S SYNDROME [None]
  - HEPATIC CIRRHOSIS [None]
  - HYPERTENSION [None]
  - OCULAR ICTERUS [None]
